FAERS Safety Report 15697991 (Version 1)
Quarter: 2018Q4

REPORT INFORMATION
  Report Type: Spontaneous
  Country: JP (occurrence: JP)
  Receive Date: 20181207
  Receipt Date: 20181207
  Transmission Date: 20190205
  Serious: Yes (Other)
  Sender: FDA-Public Use
  Company Number: JP-LUPIN PHARMACEUTICALS INC.-2018-08435

PATIENT
  Age: 29 Year
  Sex: Male

DRUGS (1)
  1. ZOLPIDEM [Suspect]
     Active Substance: ZOLPIDEM\ZOLPIDEM TARTRATE
     Indication: ASTHENIA
     Dosage: 300 TO 1,200 MG/DAY
     Route: 065

REACTIONS (4)
  - Irregular sleep wake rhythm disorder [Unknown]
  - Drug dependence [Unknown]
  - Drug abuse [Unknown]
  - Road traffic accident [Unknown]
